FAERS Safety Report 9341024 (Version 2)
Quarter: 2014Q1

REPORT INFORMATION
  Report Type: Spontaneous
  Country: US (occurrence: US)
  Receive Date: 20130610
  Receipt Date: 20140310
  Transmission Date: 20141002
  Serious: Yes (Hospitalization)
  Sender: FDA-Public Use
  Company Number: US-B.I. PHARMACEUTICALS,INC./RIDGEFIELD-2013-BI-16256BP

PATIENT
  Sex: Female
  Weight: 90.72 kg

DRUGS (10)
  1. PRADAXA [Suspect]
     Indication: ATRIAL FIBRILLATION
     Dosage: 300 MG
     Route: 048
     Dates: start: 20110906
  2. CARDIZEM [Concomitant]
     Dosage: 240 MG
     Route: 048
  3. LASIX [Concomitant]
     Dosage: 20 MG
     Route: 048
  4. CELEBREX [Concomitant]
     Dosage: 400 MG
     Route: 048
  5. LOVASTATIN [Concomitant]
     Dosage: 40 MG
     Route: 048
  6. FLEXERIL [Concomitant]
     Route: 048
  7. XANAX [Concomitant]
     Dosage: 1 G
     Route: 048
  8. ALBUTEROL [Concomitant]
     Route: 065
  9. NORCO [Concomitant]
     Route: 048
  10. K-DUR [Concomitant]
     Dosage: 20 MEQ
     Route: 048

REACTIONS (3)
  - Lower gastrointestinal haemorrhage [Unknown]
  - Microcytic anaemia [Unknown]
  - Coagulopathy [Unknown]
